FAERS Safety Report 16638711 (Version 1)
Quarter: 2019Q3

REPORT INFORMATION
  Report Type: Spontaneous
  Country: US (occurrence: US)
  Receive Date: 20190726
  Receipt Date: 20190726
  Transmission Date: 20191004
  Serious: No
  Sender: FDA-Public Use
  Company Number: US-TEVA-2019-US-1084359

PATIENT
  Sex: Male

DRUGS (1)
  1. CARBIDOPA AND LEVODOPA ACTAVIS [Suspect]
     Active Substance: CARBIDOPA\LEVODOPA
     Indication: PARKINSON^S DISEASE
     Dosage: TAKING 2 TABLETS EVERY 3 HOURS (APPROXIMATELY 8 TO 10 TABLETS PER DAY)

REACTIONS (2)
  - Drug ineffective [Unknown]
  - Product residue present [Unknown]
